FAERS Safety Report 23756857 (Version 1)
Quarter: 2024Q2

REPORT INFORMATION
  Report Type: Spontaneous
  Country: JP (occurrence: JP)
  Receive Date: 20240418
  Receipt Date: 20240418
  Transmission Date: 20240716
  Serious: Yes (Other)
  Sender: FDA-Public Use
  Company Number: JP-UCBSA-2024017558

PATIENT
  Age: 5 Month
  Sex: Female
  Weight: 5.63 kg

DRUGS (3)
  1. LEVETIRACETAM [Suspect]
     Active Substance: LEVETIRACETAM
     Indication: Epilepsy
     Dosage: 40 MILLIGRAM, 2X/DAY (BID)
     Route: 048
     Dates: start: 20240104, end: 20240111
  2. CARBOCYSTEINE [Concomitant]
     Active Substance: CARBOCYSTEINE
     Indication: Product used for unknown indication
     Dosage: UNK
  3. EPINEPHRINE [Concomitant]
     Active Substance: EPINEPHRINE
     Indication: Product used for unknown indication
     Dosage: UNK

REACTIONS (1)
  - Suspected drug-induced liver injury [Recovering/Resolving]

NARRATIVE: CASE EVENT DATE: 20240109
